FAERS Safety Report 13062793 (Version 3)
Quarter: 2017Q2

REPORT INFORMATION
  Report Type: Report from Study
  Country: US (occurrence: US)
  Receive Date: 20161226
  Receipt Date: 20170417
  Transmission Date: 20170830
  Serious: Yes (Hospitalization, Other)
  Sender: FDA-Public Use
  Company Number: US-BAXTER-2016BAX024238

PATIENT
  Age: 44 Year
  Sex: Male
  Weight: 80.1 kg

DRUGS (84)
  1. VANCOMYCIN INJECTION, USP [Suspect]
     Active Substance: VANCOMYCIN
     Indication: EVIDENCE BASED TREATMENT
     Route: 065
     Dates: start: 20160425, end: 20160425
  2. GDC-0199 [Suspect]
     Active Substance: VENETOCLAX
     Dosage: MOST RECENT DOSE PRIOR TO GRADE 3 FEBRILE NEUTROPENIA
     Route: 048
     Dates: start: 20161013
  3. DOXORUBICIN [Suspect]
     Active Substance: DOXORUBICIN
     Indication: DIFFUSE LARGE B-CELL LYMPHOMA
     Dosage: MOST RECENT DOSE PRIOR TO GRADE 3 FEVER
     Route: 042
     Dates: start: 20160418
  4. VINCRISTINE [Suspect]
     Active Substance: VINCRISTINE
     Dosage: MOST RECENT DOSE PRIOR TO GRADE 2 WORSENING SMALL INTESTINAL OBSTRUCTION
     Route: 040
     Dates: start: 20160510
  5. COMPAZINE [Concomitant]
     Active Substance: PROCHLORPERAZINE MALEATE
     Indication: NAUSEA
     Route: 065
     Dates: start: 20160421
  6. FILGRASTIM [Concomitant]
     Active Substance: FILGRASTIM
     Indication: PROPHYLAXIS
     Route: 065
     Dates: start: 20160421, end: 20160422
  7. FILGRASTIM [Concomitant]
     Active Substance: FILGRASTIM
     Route: 065
     Dates: start: 20160425, end: 20160426
  8. FILGRASTIM [Concomitant]
     Active Substance: FILGRASTIM
     Route: 065
     Dates: start: 20160511, end: 20160511
  9. POLYETHYLENE GLYCOL [Concomitant]
     Active Substance: POLYETHYLENE GLYCOLS
     Indication: CONSTIPATION PROPHYLAXIS
     Route: 065
     Dates: start: 20160421
  10. NORMAL SALINE [Concomitant]
     Active Substance: SODIUM CHLORIDE
     Route: 065
     Dates: start: 20160526, end: 20160526
  11. DIPHENHYDRAMINE. [Concomitant]
     Active Substance: DIPHENHYDRAMINE
     Route: 065
     Dates: start: 20160510, end: 20160510
  12. FUROSEMIDE. [Concomitant]
     Active Substance: FUROSEMIDE
     Indication: OEDEMA
     Route: 065
     Dates: start: 20160420, end: 20160421
  13. ENOXAPARIN [Concomitant]
     Active Substance: ENOXAPARIN
     Route: 065
     Dates: start: 20160527, end: 20160530
  14. METRONIDAZOLE INJECTION, USP [Suspect]
     Active Substance: METRONIDAZOLE
     Indication: PYREXIA
     Route: 065
     Dates: start: 20160518, end: 20160520
  15. VANCOMYCIN INJECTION, USP [Suspect]
     Active Substance: VANCOMYCIN
     Route: 065
  16. GDC-0199 [Suspect]
     Active Substance: VENETOCLAX
     Dosage: MOST RECENT DOSE ADMINISTERED PRIOR TO GRADE 2 WORSENING SMALL INTESTINAL OBSTRUCTION
     Route: 048
     Dates: start: 20160517
  17. VINCRISTINE [Suspect]
     Active Substance: VINCRISTINE
     Indication: DIFFUSE LARGE B-CELL LYMPHOMA
     Dosage: MOST RECENT DOSE PRIOR TO THE ONSET OF THE GRADE 3 FEVER
     Route: 040
     Dates: start: 20160418
  18. COMPAZINE [Concomitant]
     Active Substance: PROCHLORPERAZINE MALEATE
     Indication: ABDOMINAL PAIN
  19. ALLOPURINOL. [Concomitant]
     Active Substance: ALLOPURINOL
     Indication: PROPHYLAXIS
     Route: 065
     Dates: start: 20160421, end: 20160503
  20. PALONOSETRON [Concomitant]
     Active Substance: PALONOSETRON
     Indication: PROPHYLAXIS OF NAUSEA AND VOMITING
     Route: 065
     Dates: start: 20160418, end: 20160418
  21. DEXAMETHASONE. [Concomitant]
     Active Substance: DEXAMETHASONE
     Indication: PREMEDICATION
     Route: 065
     Dates: start: 20160418, end: 20160418
  22. NEOMYCIN SULFATE. [Concomitant]
     Active Substance: NEOMYCIN SULFATE
     Indication: PRODUCT USED FOR UNKNOWN INDICATION
     Route: 065
     Dates: start: 20160531, end: 20160531
  23. NORMOSOL R [Concomitant]
     Indication: BLOOD ELECTROLYTES
     Route: 065
     Dates: start: 20160601, end: 20160603
  24. DOXORUBICIN [Suspect]
     Active Substance: DOXORUBICIN
     Dosage: MOST RECENT DOSE PRIOR TO GRADE 2 WORSENING SMALL INTESTINAL OBSTRUCTION
     Route: 042
     Dates: start: 20160510
  25. DOXORUBICIN [Suspect]
     Active Substance: DOXORUBICIN
     Dosage: MOST RECENT DOSE PRIOR TO GRADE 3 FEBRILE NEUTROPENIA
     Route: 042
     Dates: start: 20160823
  26. PREDNISONE. [Suspect]
     Active Substance: PREDNISONE
     Dosage: DAYS 1 TO 5 OF EVERY 21 DAYS, MOST RECENT DOSE PRIOR TO THE ONSET OF GRADE 3 FEVER
     Route: 048
     Dates: start: 20160422
  27. MAGNESIUM HYDROXIDE. [Concomitant]
     Active Substance: MAGNESIUM HYDROXIDE
     Indication: CONSTIPATION PROPHYLAXIS
     Route: 065
     Dates: start: 20160422, end: 20160503
  28. NORMAL SALINE [Concomitant]
     Active Substance: SODIUM CHLORIDE
     Route: 065
     Dates: start: 20160419, end: 20160422
  29. NORMAL SALINE [Concomitant]
     Active Substance: SODIUM CHLORIDE
     Route: 065
     Dates: start: 20160510, end: 20160510
  30. NORMAL SALINE [Concomitant]
     Active Substance: SODIUM CHLORIDE
     Route: 065
     Dates: start: 20160519, end: 20160520
  31. PARACETAMOL [Concomitant]
     Active Substance: ACETAMINOPHEN
     Indication: PAIN
     Route: 065
     Dates: start: 20160510, end: 20160510
  32. MAGNESIUM SULFATE. [Concomitant]
     Active Substance: MAGNESIUM SULFATE
     Route: 065
     Dates: start: 20160531, end: 20160531
  33. METRONIDAZOLE INJECTION, USP [Suspect]
     Active Substance: METRONIDAZOLE
     Route: 065
     Dates: start: 20160531, end: 20160531
  34. GDC-0199 [Suspect]
     Active Substance: VENETOCLAX
     Indication: DIFFUSE LARGE B-CELL LYMPHOMA
     Route: 048
     Dates: start: 20160421
  35. RITUXIMAB [Suspect]
     Active Substance: RITUXIMAB
     Dosage: THE MOST RECENT DOSE PRIOR TO GRADE 3 FEBRILE NEUTROPENIA
     Route: 042
     Dates: start: 20161004
  36. PREDNISONE. [Suspect]
     Active Substance: PREDNISONE
     Indication: DIFFUSE LARGE B-CELL LYMPHOMA
     Dosage: DAYS 1 TO 5 OF EVERY 21 DAYS
     Route: 048
     Dates: start: 20160418
  37. PREDNISONE. [Suspect]
     Active Substance: PREDNISONE
     Dosage: DAYS 1 TO 5 OF EVERY 21 DAYS, MOST RECENT DOSE PRIOR TO GRADE 2 WORSENING SMALL INTESTINAL OBSTRUCTI
     Route: 048
     Dates: start: 20160514
  38. PROCHLORPERAZINE. [Concomitant]
     Active Substance: PROCHLORPERAZINE
     Indication: PROPHYLAXIS OF NAUSEA AND VOMITING
     Route: 065
     Dates: start: 20160421
  39. PROCHLORPERAZINE. [Concomitant]
     Active Substance: PROCHLORPERAZINE
     Route: 065
     Dates: start: 20160518, end: 20160520
  40. SENNA [Concomitant]
     Active Substance: SENNA LEAF\SENNOSIDES\SENNOSIDES A AND B
     Indication: CONSTIPATION PROPHYLAXIS
     Route: 065
     Dates: start: 20160421, end: 20160527
  41. FOSAPREPITANT [Concomitant]
     Active Substance: FOSAPREPITANT
     Indication: PROPHYLAXIS OF NAUSEA AND VOMITING
     Route: 065
     Dates: start: 20160418, end: 20160418
  42. DIPHENHYDRAMINE. [Concomitant]
     Active Substance: DIPHENHYDRAMINE
     Route: 065
     Dates: start: 20160518, end: 20160518
  43. IOHEXOL [Concomitant]
     Active Substance: IOHEXOL
     Indication: PRODUCT USED FOR UNKNOWN INDICATION
     Dosage: CONTRAST AGENT
     Route: 065
     Dates: start: 20160425, end: 20160425
  44. ENOXAPARIN [Concomitant]
     Active Substance: ENOXAPARIN
     Indication: THROMBOSIS PROPHYLAXIS
     Route: 065
     Dates: start: 20160425, end: 20160425
  45. PEGFILGRASTIM [Concomitant]
     Active Substance: PEGFILGRASTIM
     Indication: PROPHYLAXIS
     Route: 065
     Dates: start: 20160511, end: 20160511
  46. RITUXIMAB [Suspect]
     Active Substance: RITUXIMAB
     Indication: DIFFUSE LARGE B-CELL LYMPHOMA
     Dosage: MOST RECENT DOSE WAS ADMINISTERED PRIOR TO GRADE 3 FEVER
     Route: 042
     Dates: start: 20160418
  47. VINCRISTINE [Suspect]
     Active Substance: VINCRISTINE
     Dosage: REDUCED DOSE
     Route: 040
  48. VINCRISTINE [Suspect]
     Active Substance: VINCRISTINE
     Dosage: MOST RECENT DOSE PRIOR TO GRADE 3 FEBRILE NEUTROPENIA
     Route: 040
     Dates: start: 20160823
  49. PREDNISONE. [Suspect]
     Active Substance: PREDNISONE
     Dosage: DAYS 1 TO 5 OF EVERY 21 DAYS, MOST RECENT DOSE PRIOR TO GRADE 3 FEBRILE NEUTROPENIA
     Route: 048
     Dates: start: 20160827
  50. AZTREONAM. [Suspect]
     Active Substance: AZTREONAM
     Indication: EVIDENCE BASED TREATMENT
     Route: 065
     Dates: start: 20160425, end: 20160425
  51. CIPROFLOXACIN. [Suspect]
     Active Substance: CIPROFLOXACIN
     Indication: PYREXIA
     Route: 065
     Dates: start: 20160425, end: 20160502
  52. ACICLOVIR [Concomitant]
     Active Substance: ACYCLOVIR
     Indication: ANTIVIRAL PROPHYLAXIS
     Route: 065
     Dates: start: 20160421
  53. NORMAL SALINE [Concomitant]
     Active Substance: SODIUM CHLORIDE
     Route: 065
     Dates: start: 20160425, end: 20160425
  54. NORMAL SALINE [Concomitant]
     Active Substance: SODIUM CHLORIDE
     Route: 065
     Dates: start: 20160518, end: 20160518
  55. PALONOSETRON [Concomitant]
     Active Substance: PALONOSETRON
     Route: 065
     Dates: start: 20160510, end: 20160510
  56. IOHEXOL [Concomitant]
     Active Substance: IOHEXOL
     Route: 065
     Dates: start: 20160518, end: 20160518
  57. KETOROLAC [Concomitant]
     Active Substance: KETOROLAC\KETOROLAC TROMETHAMINE
     Indication: PAIN
     Route: 065
     Dates: start: 20160601, end: 20160602
  58. METRONIDAZOLE INJECTION, USP [Suspect]
     Active Substance: METRONIDAZOLE
     Indication: SMALL INTESTINAL OBSTRUCTION
     Route: 065
     Dates: start: 20160425, end: 20160502
  59. CYCLOPHOSPHAMIDE FOR INJECTION, USP [Suspect]
     Active Substance: CYCLOPHOSPHAMIDE
     Dosage: MOST RECENT DOSE PRIOR TO GRADE 2 WORSENING SMALL INTESTINAL OBSTRUCTION
     Route: 042
     Dates: start: 20160510
  60. CYCLOPHOSPHAMIDE FOR INJECTION, USP [Suspect]
     Active Substance: CYCLOPHOSPHAMIDE
     Dosage: MOST RECENT DOSE PRIOR TO GRADE 3 FEBRILE NEUTROPENIA
     Route: 042
     Dates: start: 20160823
  61. GDC-0199 [Suspect]
     Active Substance: VENETOCLAX
     Dosage: MOST RECENT DOSE ADMINISTERED PRIOR TO GRADE 3 FEVER
     Route: 048
     Dates: start: 20160424
  62. NORMAL SALINE [Concomitant]
     Active Substance: SODIUM CHLORIDE
     Indication: DEHYDRATION
     Route: 065
     Dates: start: 20160417, end: 20160417
  63. PARACETAMOL [Concomitant]
     Active Substance: ACETAMINOPHEN
     Indication: PREMEDICATION
     Route: 065
     Dates: start: 20160418, end: 20160418
  64. PARACETAMOL [Concomitant]
     Active Substance: ACETAMINOPHEN
     Route: 065
     Dates: start: 20160601, end: 20160604
  65. PARACETAMOL [Concomitant]
     Active Substance: ACETAMINOPHEN
     Route: 065
     Dates: start: 20160604, end: 20160604
  66. ENOXAPARIN [Concomitant]
     Active Substance: ENOXAPARIN
     Route: 065
     Dates: start: 20160602, end: 20160606
  67. HYDROMORPHONE [Concomitant]
     Active Substance: HYDROMORPHONE
     Indication: PAIN
     Route: 065
     Dates: start: 20160526, end: 20160528
  68. HYDROMORPHONE [Concomitant]
     Active Substance: HYDROMORPHONE
     Route: 065
     Dates: start: 20160601, end: 20160603
  69. POTASSIUM CHLORIDE. [Concomitant]
     Active Substance: POTASSIUM CHLORIDE
     Indication: HYPOKALAEMIA
     Route: 065
     Dates: start: 20160531, end: 20160531
  70. LACTATED RINGERS [Concomitant]
     Active Substance: CALCIUM CHLORIDE\POTASSIUM CHLORIDE\SODIUM CHLORIDE\SODIUM LACTATE
     Indication: BLOOD ELECTROLYTES
     Route: 040
     Dates: start: 20160602, end: 20160602
  71. CYCLOPHOSPHAMIDE FOR INJECTION, USP [Suspect]
     Active Substance: CYCLOPHOSPHAMIDE
     Indication: DIFFUSE LARGE B-CELL LYMPHOMA
     Dosage: MOST RECENT DOSE PRIOR TO GRADE 3 FEVER
     Route: 042
     Dates: start: 20160418
  72. RITUXIMAB [Suspect]
     Active Substance: RITUXIMAB
     Dosage: THE MOST RECENT DOSE PRIOR TO EVENT GRADE 2 WORSENING SMALL INTESTINAL OBSTRUCTION
     Route: 042
     Dates: start: 20160510
  73. FILGRASTIM [Concomitant]
     Active Substance: FILGRASTIM
     Route: 065
     Dates: start: 20160422, end: 20160422
  74. ONDANSETRON [Concomitant]
     Active Substance: ONDANSETRON
     Indication: PROPHYLAXIS OF NAUSEA AND VOMITING
     Route: 065
     Dates: start: 20160421, end: 20160510
  75. FOSAPREPITANT [Concomitant]
     Active Substance: FOSAPREPITANT
     Route: 065
     Dates: start: 20160510, end: 20160510
  76. DEXAMETHASONE. [Concomitant]
     Active Substance: DEXAMETHASONE
     Route: 065
     Dates: start: 20160510, end: 20160510
  77. DIPHENHYDRAMINE. [Concomitant]
     Active Substance: DIPHENHYDRAMINE
     Indication: PREMEDICATION
     Route: 065
     Dates: start: 20160418, end: 20160418
  78. MAGNESIUM SULFATE. [Concomitant]
     Active Substance: MAGNESIUM SULFATE
     Indication: CONSTIPATION
     Route: 065
     Dates: start: 20160528, end: 20160528
  79. DOCUSATE SODIUM. [Concomitant]
     Active Substance: DOCUSATE SODIUM
     Indication: CONSTIPATION PROPHYLAXIS
     Route: 065
     Dates: start: 20160421, end: 20160527
  80. PANTOPRAZOLE [Concomitant]
     Active Substance: PANTOPRAZOLE
     Indication: GASTROOESOPHAGEAL REFLUX PROPHYLAXIS
     Route: 065
     Dates: start: 20160421
  81. NORMAL SALINE [Concomitant]
     Active Substance: SODIUM CHLORIDE
     Route: 065
     Dates: start: 20160527, end: 20160527
  82. OXYCODONE [Concomitant]
     Active Substance: OXYCODONE
     Indication: PAIN
     Route: 065
     Dates: start: 20160510
  83. LACTULOSE. [Concomitant]
     Active Substance: LACTULOSE
     Indication: CONSTIPATION PROPHYLAXIS
     Route: 065
     Dates: start: 20160418, end: 20160418
  84. IOHEXOL [Concomitant]
     Active Substance: IOHEXOL
     Route: 065
     Dates: start: 20160526, end: 20160526

REACTIONS (7)
  - Small intestinal obstruction [Recovered/Resolved]
  - Febrile neutropenia [Not Recovered/Not Resolved]
  - Condition aggravated [Recovered/Resolved]
  - Small intestinal obstruction [Recovered/Resolved with Sequelae]
  - Ascites [Unknown]
  - Condition aggravated [Recovered/Resolved with Sequelae]
  - Pyrexia [Recovered/Resolved]

NARRATIVE: CASE EVENT DATE: 20160424
